FAERS Safety Report 5413468-9 (Version None)
Quarter: 2007Q3

REPORT INFORMATION
  Report Type: 
  Country: None (occurrence: None)
  Receive Date: 20070814
  Receipt Date: 20070803
  Transmission Date: 20080115
  Serious: Yes (Death, Life-Threatening, Other)
  Sender: FDA-Public Use
  Company Number: GB-JNJFOC-20070801052

PATIENT
  Sex: Male
  Weight: 84 kg

DRUGS (13)
  1. INFLIXIMAB [Suspect]
     Indication: RHEUMATOID ARTHRITIS
     Route: 042
  2. SULFASALAZINE [Concomitant]
  3. METHOTREXATE [Concomitant]
  4. PREDNESOL [Concomitant]
  5. BENDROFLUAZIDE [Concomitant]
  6. FLIXOTIDE [Concomitant]
  7. FOLIC ACID [Concomitant]
  8. LANSOPRAZOLE [Concomitant]
  9. NABUMETONE [Concomitant]
  10. SEREVENT [Concomitant]
  11. LEVOTHYROXINE SODIUM [Concomitant]
  12. VENTOLIN [Concomitant]
  13. WARFARIN SODIUM [Concomitant]

REACTIONS (1)
  - DEATH [None]
